FAERS Safety Report 7838090-6 (Version None)
Quarter: 2011Q4

REPORT INFORMATION
  Report Type: 
  Country: None (occurrence: None)
  Receive Date: 20111024
  Receipt Date: 20110404
  Transmission Date: 20120403
  Serious: No
  Sender: FDA-Public Use
  Company Number: US-ABBOTT-11P-163-0717368-00

PATIENT
  Sex: Female

DRUGS (9)
  1. ZYRTEC [Concomitant]
     Indication: PRODUCT USED FOR UNKNOWN INDICATION
  2. NIACIN [Concomitant]
     Indication: PRODUCT USED FOR UNKNOWN INDICATION
  3. ADVAIR DISKUS 100/50 [Concomitant]
     Indication: ASTHMA
  4. TOPAMAX [Concomitant]
     Indication: PRODUCT USED FOR UNKNOWN INDICATION
  5. CALCIUM W/MAGNESIUM [Concomitant]
     Indication: PRODUCT USED FOR UNKNOWN INDICATION
  6. LUPRON DEPOT [Suspect]
     Indication: ENDOMETRIOSIS
     Dates: start: 20110308
  7. ASCORBIC ACID [Concomitant]
     Indication: PRODUCT USED FOR UNKNOWN INDICATION
  8. VITAMIN B COMPLEX CAP [Concomitant]
     Indication: PRODUCT USED FOR UNKNOWN INDICATION
  9. CRANBERRY SUPPLEMENT [Concomitant]
     Indication: PRODUCT USED FOR UNKNOWN INDICATION

REACTIONS (1)
  - ASTHMA [None]
